FAERS Safety Report 8820343 (Version 1)
Quarter: 2012Q4

REPORT INFORMATION
  Report Type: Report from Study
  Country: US (occurrence: US)
  Receive Date: 20121002
  Receipt Date: 20121002
  Transmission Date: 20130627
  Serious: Yes (Hospitalization)
  Sender: FDA-Public Use
  Company Number: US-MERCK-1209USA009830

PATIENT
  Age: 63 Year
  Sex: Male
  Weight: 87.75 kg

DRUGS (9)
  1. VICTRELIS [Suspect]
     Indication: HEPATITIS C
     Dosage: 2400MG,QD
     Route: 048
     Dates: start: 20120701, end: 20120824
  2. PEGINTRON [Suspect]
     Dosage: 150mg/0.51ml
     Dates: start: 20120603, end: 20120824
  3. PROTONIX [Concomitant]
     Dosage: 40 mg, qd
  4. INDERAL [Concomitant]
     Dosage: 40 mg, tid
  5. PRIMIDONE [Concomitant]
     Dosage: 50 mg, tid
  6. VITAMIN E [Concomitant]
  7. ASCORBIC ACID [Concomitant]
  8. ACIDOPHILUS [Concomitant]
  9. VITAMINS (UNSPECIFIED) [Concomitant]

REACTIONS (4)
  - Abdominal pain [Recovering/Resolving]
  - Malaise [Recovering/Resolving]
  - Nausea [Recovering/Resolving]
  - Diarrhoea [Recovering/Resolving]
